FAERS Safety Report 23505077 (Version 1)
Quarter: 2024Q1

REPORT INFORMATION
  Report Type: Spontaneous
  Country: JP (occurrence: JP)
  Receive Date: 20240209
  Receipt Date: 20240209
  Transmission Date: 20240409
  Serious: Yes (Hospitalization)
  Sender: FDA-Public Use
  Company Number: JP-ORGANON-O2402JPN000567

PATIENT
  Age: 79 Year
  Sex: Male
  Weight: 59 kg

DRUGS (5)
  1. ALENDRONATE SODIUM [Suspect]
     Active Substance: ALENDRONATE SODIUM
     Dosage: 35 MILLIGRAM
     Route: 048
     Dates: end: 20180824
  2. NOVOLIN R [Suspect]
     Active Substance: INSULIN HUMAN
     Dosage: 2 U BEFORE BREAKFAST, 4 U BEFORE LUNCH, AND 4 U BEFORE SUPPER
     Route: 058
     Dates: end: 20180824
  3. INSULIN GLARGINE [Suspect]
     Active Substance: INSULIN GLARGINE
     Dosage: 5 U BEFORE BREAKFAST
     Route: 058
     Dates: end: 20180824
  4. NAFTOPIDIL [Suspect]
     Active Substance: NAFTOPIDIL
     Dosage: 50 MILLIGRAM, QD
     Route: 048
     Dates: end: 20180907
  5. MIRABEGRON [Suspect]
     Active Substance: MIRABEGRON
     Dosage: 50 MILLIGRAM, QD
     Route: 048
     Dates: end: 20180907

REACTIONS (1)
  - Erythema multiforme [Recovering/Resolving]

NARRATIVE: CASE EVENT DATE: 20180820
